FAERS Safety Report 11104855 (Version 2)
Quarter: 2015Q2

REPORT INFORMATION
  Report Type: Report from Study
  Country: IT (occurrence: IT)
  Receive Date: 20150511
  Receipt Date: 20150513
  Transmission Date: 20150821
  Serious: Yes (Other)
  Sender: FDA-Public Use
  Company Number: PHHO2015IT007956

PATIENT
  Age: 60 Year
  Sex: Female

DRUGS (1)
  1. CGS 20267 [Suspect]
     Active Substance: LETROZOLE
     Indication: BREAST CANCER
     Dosage: 2.5 MG, QD (DAILY)
     Route: 048
     Dates: start: 20090812

REACTIONS (3)
  - Salivary gland cancer [Recovered/Resolved]
  - Second primary malignancy [Recovered/Resolved]
  - Mucoepidermoid carcinoma [Recovered/Resolved]

NARRATIVE: CASE EVENT DATE: 20141002
